FAERS Safety Report 12581930 (Version 4)
Quarter: 2016Q3

REPORT INFORMATION
  Report Type: Report from Study
  Country: FR (occurrence: FR)
  Receive Date: 20160722
  Receipt Date: 20160823
  Transmission Date: 20161109
  Serious: Yes (Hospitalization, Other)
  Sender: FDA-Public Use
  Company Number: FR-BRISTOL-MYERS SQUIBB COMPANY-BMS-2016-059423

PATIENT
  Age: 80 Year
  Sex: Male
  Weight: 76.5 kg

DRUGS (3)
  1. NIVOLUMAB [Suspect]
     Active Substance: NIVOLUMAB
     Indication: RENAL CELL CARCINOMA
     Dosage: 1416 MG, TOTAL
     Route: 042
     Dates: start: 20160412, end: 20160705
  2. COUMADINE [Concomitant]
     Active Substance: WARFARIN SODIUM
     Indication: RENAL VEIN THROMBOSIS
     Dosage: 2 MG, QD
     Route: 048
  3. LOXEN                              /00639802/ [Concomitant]
     Active Substance: NICARDIPINE
     Indication: HYPOTENSION
     Dosage: 50 MG, BID
     Route: 048

REACTIONS (2)
  - Neuromyopathy [Unknown]
  - Asthenia [Not Recovered/Not Resolved]

NARRATIVE: CASE EVENT DATE: 20160713
